FAERS Safety Report 25804648 (Version 3)
Quarter: 2025Q4

REPORT INFORMATION
  Report Type: Spontaneous
  Country: JP (occurrence: JP)
  Receive Date: 20250915
  Receipt Date: 20251029
  Transmission Date: 20260117
  Serious: Yes (Other)
  Sender: MERCK SHARP & DOHME LLC
  Company Number: JP-009507513-2328117

PATIENT
  Age: 76 Year
  Sex: Female

DRUGS (2)
  1. KEYTRUDA [Suspect]
     Active Substance: PEMBROLIZUMAB
     Indication: Triple negative breast cancer
     Dosage: 7 COURSES
     Route: 041
     Dates: start: 202503, end: 202508
  2. CYCLOPHOSPHAMIDE\EPIRUBICIN [Suspect]
     Active Substance: CYCLOPHOSPHAMIDE\EPIRUBICIN
     Indication: Triple negative breast cancer
     Route: 041
     Dates: end: 202506

REACTIONS (4)
  - Retroperitoneal abscess [Unknown]
  - Cognitive disorder [Unknown]
  - Diverticulitis [Unknown]
  - Febrile neutropenia [Unknown]

NARRATIVE: CASE EVENT DATE: 20250101
